FAERS Safety Report 7240997-8 (Version None)
Quarter: 2011Q1

REPORT INFORMATION
  Report Type: 
  Country: None (occurrence: None)
  Receive Date: 20110124
  Receipt Date: 20110110
  Transmission Date: 20110831
  Serious: Yes (Hospitalization)
  Sender: FDA-Public Use
  Company Number: DE-BAYER-2010-000173

PATIENT
  Sex: Female
  Weight: 100 kg

DRUGS (16)
  1. LISINOPRIL [Concomitant]
     Dosage: UNK
     Dates: start: 20030101
  2. EPIRUBICIN [Concomitant]
     Dosage: 150 MG
     Dates: start: 20101125
  3. CYCLOPHOSPHAMIDE [Concomitant]
     Dosage: DAILY DOSE 600 MG/M2
     Route: 042
     Dates: start: 20101018, end: 20101115
  4. CYCLOPHOSPHAMIDE [Concomitant]
     Dosage: UNK
     Dates: start: 20101115
  5. SORAFENIB (RAF KINASE INHIBITOR) [Suspect]
     Dosage: 800 MG
     Dates: start: 20101113
  6. METFORMIN [Concomitant]
     Dosage: 850 MG, BID
     Dates: start: 20080101
  7. SORAFENIB (RAF KINASE INHIBITOR) [Suspect]
     Dosage: DAILY DOSE 800 MG
     Route: 048
     Dates: start: 20100719, end: 20101109
  8. EMEND [Concomitant]
     Dosage: DAILY DOSE 80 MG/D
     Dates: start: 20101018
  9. OMEPRAZOLE [Concomitant]
     Dosage: UNK
  10. EPIRUBICIN [Concomitant]
     Dosage: DAILY DOSE 180 MG
     Route: 042
     Dates: start: 20101018, end: 20101115
  11. MCP [Concomitant]
     Dosage: UNK UNK, PRN
     Dates: start: 20101018
  12. BISOHEXAL [Concomitant]
     Dosage: 5 MG, UNK
     Dates: start: 20030101
  13. JANUVIA [Concomitant]
     Dosage: UNK
     Dates: start: 20080101
  14. AMLODIPINE [Concomitant]
     Dosage: 5 MG, BID
  15. PACLITAXEL [Concomitant]
  16. PALLADONE [Concomitant]
     Dosage: DAILY DOSE 4 MG
     Dates: start: 20101104

REACTIONS (4)
  - ABSCESS LIMB [None]
  - INFECTION [None]
  - NAUSEA [None]
  - ASTHENIA [None]
